FAERS Safety Report 9759333 (Version 1)
Quarter: 2013Q4

REPORT INFORMATION
  Report Type: Spontaneous
  Country: US (occurrence: None)
  Receive Date: 20131216
  Receipt Date: 20131216
  Transmission Date: 20140711
  Serious: Yes (Other)
  Sender: FDA-Public Use
  Company Number: 163-21880-12040911(0)

PATIENT
  Age: 66 Year
  Sex: Female

DRUGS (1)
  1. REVLIMID [Suspect]
     Indication: PLASMA CELL MYELOMA
     Dosage: 10 MG, DAILY X21 DAYS, PO? ?

REACTIONS (8)
  - Swelling [None]
  - Swelling face [None]
  - Local swelling [None]
  - Local swelling [None]
  - Muscle spasms [None]
  - Muscle spasms [None]
  - Muscle spasms [None]
  - Epistaxis [None]
